FAERS Safety Report 7800604-X (Version None)
Quarter: 2011Q4

REPORT INFORMATION
  Report Type: 
  Country: None (occurrence: None)
  Receive Date: 20111006
  Receipt Date: 20110926
  Transmission Date: 20120403
  Serious: Yes (Other)
  Sender: FDA-Public Use
  Company Number: US-BAYER-2011-019367

PATIENT
  Age: 23 Year
  Sex: Female
  Weight: 119 kg

DRUGS (5)
  1. SUMATRIPTAN SUCCINATE [Concomitant]
  2. RANITIDINE [Concomitant]
  3. NASACORT AQ [Concomitant]
  4. YAZ [Suspect]
     Indication: CONTRACEPTION
     Dosage: UNK
     Dates: start: 20100101, end: 20100501
  5. OMEPRAZOLE [Concomitant]

REACTIONS (3)
  - PAIN [None]
  - BILIARY DYSKINESIA [None]
  - CHOLECYSTITIS CHRONIC [None]
